FAERS Safety Report 7133071-2 (Version None)
Quarter: 2010Q4

REPORT INFORMATION
  Report Type: 
  Country: None (occurrence: None)
  Receive Date: 20101202
  Receipt Date: 20101125
  Transmission Date: 20110411
  Serious: Yes (Hospitalization)
  Sender: FDA-Public Use
  Company Number: B0682084A

PATIENT
  Sex: Female
  Weight: 51 kg

DRUGS (11)
  1. TYKERB [Suspect]
     Indication: BREAST CANCER
     Dosage: 1250MG PER DAY
     Route: 048
     Dates: start: 20100909, end: 20100930
  2. XELODA [Suspect]
     Dosage: 1800MG PER DAY
     Route: 048
     Dates: start: 20100909, end: 20100920
  3. EPIRUBICIN [Concomitant]
     Dates: start: 20100603, end: 20100806
  4. CYCLOPHOSPHAMIDE [Concomitant]
     Dates: start: 20100603, end: 20100806
  5. FLUOROURACIL [Concomitant]
     Dates: start: 20100603, end: 20100806
  6. HERCEPTIN [Concomitant]
     Dates: start: 20100827
  7. PACLITAXEL [Concomitant]
     Dates: start: 20100827
  8. AROMASIN [Concomitant]
  9. HYSRON [Concomitant]
     Dates: start: 20100716
  10. VINORELBINE [Concomitant]
  11. ANTI-DIARRHEAL [Concomitant]

REACTIONS (3)
  - DECREASED APPETITE [None]
  - DIARRHOEA [None]
  - MONOPLEGIA [None]
